FAERS Safety Report 4578677-X (Version None)
Quarter: 2005Q1

REPORT INFORMATION
  Report Type: 
  Country: None (occurrence: None)
  Receive Date: 20050207
  Receipt Date: 20050207
  Transmission Date: 20050727
  Serious: Yes (Other)
  Sender: FDA-Public Use
  Company Number: None

PATIENT
  Age: 37 Year
  Sex: Male
  Weight: 79.6 kg

DRUGS (3)
  1. CETUXIMAB  250MG/M2  BMS [Suspect]
     Indication: RECTAL CANCER
     Dosage: 507.5MG  EVERY WEEK INTRAVENOUS
     Route: 042
     Dates: start: 20050119, end: 20050131
  2. OXALIPLATIN [Concomitant]
  3. XELODA [Concomitant]

REACTIONS (2)
  - DEHYDRATION [None]
  - SYNCOPE [None]
